FAERS Safety Report 19870660 (Version 2)
Quarter: 2022Q4

REPORT INFORMATION
  Report Type: Spontaneous
  Country: US (occurrence: US)
  Receive Date: 20210923
  Receipt Date: 20221017
  Transmission Date: 20230113
  Serious: No
  Sender: FDA-Public Use
  Company Number: US-CELLTRION INC.-2021US000143

PATIENT

DRUGS (2)
  1. INFLECTRA [Suspect]
     Active Substance: INFLIXIMAB-DYYB
     Indication: Crohn^s disease
     Dosage: UNABLE TO PROVIDE, INJECTION RECEIVED FROM ANYWHERE FROM EVERY 8-12 WEEKS
     Route: 065
     Dates: start: 2009
  2. COVID-19 VACCINE [Concomitant]

REACTIONS (5)
  - Weight increased [Unknown]
  - Off label use [Unknown]
  - Intentional dose omission [Not Recovered/Not Resolved]
  - Intentional product misuse [Unknown]
  - Treatment delayed [Unknown]

NARRATIVE: CASE EVENT DATE: 20201223
